FAERS Safety Report 21448100 (Version 1)
Quarter: 2022Q4

REPORT INFORMATION
  Report Type: Report from Study
  Country: US (occurrence: US)
  Receive Date: 20221012
  Receipt Date: 20221012
  Transmission Date: 20230113
  Serious: Yes (Death, Hospitalization)
  Sender: FDA-Public Use
  Company Number: US-ABBVIE-4151527

PATIENT
  Sex: Female
  Weight: 41.73 kg

DRUGS (5)
  1. CREON [Suspect]
     Active Substance: PANCRELIPASE AMYLASE\PANCRELIPASE LIPASE\PANCRELIPASE PROTEASE
     Indication: Dyspepsia
     Dosage: 2 CAPSULES WITH EVERY MEAL THRICE A DAY AND 1 WITH SNACKS
     Route: 048
     Dates: start: 2021, end: 202209
  2. Covid19 vaccine [Concomitant]
     Indication: COVID-19 immunisation
     Route: 030
  3. Covid19 vaccine [Concomitant]
     Indication: COVID-19 immunisation
     Route: 030
  4. Covid19 vaccine [Concomitant]
     Indication: COVID-19 immunisation
     Dosage: 1ST BOOSTER DOSE
     Route: 030
  5. Covid19 vaccine [Concomitant]
     Indication: COVID-19 immunisation
     Dosage: 2ND BOOSTER DOSE
     Route: 030

REACTIONS (9)
  - Pancreatic carcinoma metastatic [Fatal]
  - Chemotherapy [Fatal]
  - Diarrhoea [Fatal]
  - Pain [Fatal]
  - Dyspnoea [Fatal]
  - Vomiting [Fatal]
  - Coma [Fatal]
  - Catheter placement [Fatal]
  - Hypophagia [Fatal]

NARRATIVE: CASE EVENT DATE: 20210101
